FAERS Safety Report 22072311 (Version 3)
Quarter: 2023Q2

REPORT INFORMATION
  Report Type: Report from Study
  Country: US (occurrence: US)
  Receive Date: 20230308
  Receipt Date: 20230411
  Transmission Date: 20230721
  Serious: Yes (Other)
  Sender: FDA-Public Use
  Company Number: US-ABBVIE-4329119

PATIENT
  Sex: Female

DRUGS (2)
  1. HUMIRA [Suspect]
     Active Substance: ADALIMUMAB
     Indication: Colitis ulcerative
     Dosage: FORM STRENGTH: 40 MG
     Route: 058
     Dates: start: 20221219
  2. HUMIRA [Suspect]
     Active Substance: ADALIMUMAB
     Indication: Crohn^s disease
     Dosage: FORM STRENGTH: 40 MG/END DATE -2022
     Route: 058
     Dates: start: 20221121

REACTIONS (5)
  - Uveitis [Not Recovered/Not Resolved]
  - Skin disorder [Unknown]
  - Drug level abnormal [Unknown]
  - Crohn^s disease [Unknown]
  - Dermatitis [Unknown]

NARRATIVE: CASE EVENT DATE: 20230101
